FAERS Safety Report 9882553 (Version 1)
Quarter: 2014Q1

REPORT INFORMATION
  Report Type: Spontaneous
  Country: FR (occurrence: FR)
  Receive Date: 20140207
  Receipt Date: 20140207
  Transmission Date: 20141002
  Serious: Yes (Life-Threatening, Hospitalization)
  Sender: FDA-Public Use
  Company Number: FR-PFIZER INC-2014032733

PATIENT
  Age: 51 Year
  Sex: Male

DRUGS (3)
  1. SOLU-MEDROL [Suspect]
     Indication: SINUS DISORDER
     Dosage: UNK
     Route: 042
     Dates: start: 20051220, end: 20051222
  2. ROCEPHINE [Suspect]
     Indication: SINUS DISORDER
     Dosage: UNK
     Route: 042
     Dates: start: 20051220, end: 20051222
  3. TIBERAL [Suspect]
     Indication: SINUS DISORDER
     Dosage: UNK
     Route: 042
     Dates: start: 20051220, end: 20051222

REACTIONS (1)
  - Cellulitis [Recovered/Resolved]
